FAERS Safety Report 18740426 (Version 2)
Quarter: 2022Q2

REPORT INFORMATION
  Report Type: Spontaneous
  Country: IN (occurrence: IN)
  Receive Date: 20210114
  Receipt Date: 20220407
  Transmission Date: 20220721
  Serious: Yes (Death, Other)
  Sender: FDA-Public Use
  Company Number: IN-PFIZER INC-2020494916

PATIENT
  Age: 59 Year
  Sex: Male

DRUGS (2)
  1. DACOMITINIB [Suspect]
     Active Substance: DACOMITINIB
     Indication: Lung adenocarcinoma
     Dosage: 45 MG, 1X/DAY
     Route: 048
     Dates: start: 20201212
  2. DACOMITINIB [Suspect]
     Active Substance: DACOMITINIB
     Dosage: 30 MG, 1X/DAY
     Route: 048
     Dates: start: 20210222, end: 20220205

REACTIONS (12)
  - Death [Fatal]
  - Haemoglobin decreased [Unknown]
  - Diarrhoea [Unknown]
  - Rash [Unknown]
  - Retching [Unknown]
  - Mucosal inflammation [Unknown]
  - Asthenia [Unknown]
  - Decreased appetite [Unknown]
  - Mean cell volume decreased [Unknown]
  - Quality of life decreased [Unknown]
  - Neoplasm progression [Unknown]
  - Platelet count decreased [Unknown]

NARRATIVE: CASE EVENT DATE: 20220205
